FAERS Safety Report 13524549 (Version 1)
Quarter: 2017Q2

REPORT INFORMATION
  Report Type: Spontaneous
  Country: US (occurrence: US)
  Receive Date: 20170508
  Receipt Date: 20170508
  Transmission Date: 20170830
  Serious: No
  Sender: FDA-Public Use
  Company Number: US-ACTELION-A-US2017-153448

PATIENT
  Age: 83 Year
  Sex: Male

DRUGS (2)
  1. VALCHLOR [Suspect]
     Active Substance: MECHLORETHAMINE
     Indication: MYCOSIS FUNGOIDES
     Dosage: UNK
     Route: 061
     Dates: start: 20170204
  2. AMLACTIN [Concomitant]
     Active Substance: AMMONIUM LACTATE

REACTIONS (2)
  - Urticaria [Unknown]
  - Pruritus [Unknown]
